FAERS Safety Report 21995384 (Version 7)
Quarter: 2023Q1

REPORT INFORMATION
  Report Type: Spontaneous
  Country: US (occurrence: US)
  Receive Date: 20230215
  Receipt Date: 20230309
  Transmission Date: 20230418
  Serious: Yes (Other)
  Sender: FDA-Public Use
  Company Number: US-PFIZER INC-202300063572

PATIENT
  Age: 64 Year
  Sex: Male
  Weight: 104.3 kg

DRUGS (2)
  1. GENOTROPIN [Suspect]
     Active Substance: SOMATROPIN
     Indication: Growth hormone deficiency
     Dosage: UNK
  2. GENOTROPIN [Suspect]
     Active Substance: SOMATROPIN
     Dosage: 1 MG, 2X/DAY (BY INJECTION SUBCUTANEOUS)
     Route: 058
     Dates: start: 202301

REACTIONS (11)
  - Brain injury [Unknown]
  - Marfan^s syndrome [Unknown]
  - Concussion [Unknown]
  - Depression [Unknown]
  - Suture related complication [Unknown]
  - Nerve injury [Unknown]
  - Device physical property issue [Unknown]
  - Intentional product misuse [Unknown]
  - Product dose omission issue [Unknown]
  - Product supply issue [Unknown]
  - Intentional misuse of drug delivery system [Unknown]

NARRATIVE: CASE EVENT DATE: 20230101
